FAERS Safety Report 4868684-1 (Version None)
Quarter: 2005Q4

REPORT INFORMATION
  Report Type: 
  Country: None (occurrence: None)
  Receive Date: 20051223
  Receipt Date: 20051214
  Transmission Date: 20060501
  Serious: Yes (Hospitalization, Other)
  Sender: FDA-Public Use
  Company Number: 2005158306

PATIENT
  Age: 55 Year
  Sex: Male
  Weight: 85.7298 kg

DRUGS (8)
  1. LIPITOR [Suspect]
     Indication: BLOOD CHOLESTEROL INCREASED
     Dosage: 40 MG (40 MG, 1 IN 1 D), ORAL
     Route: 048
  2. LIPITOR [Suspect]
     Indication: LIPIDS INCREASED
     Dosage: 40 MG (40 MG, 1 IN 1 D), ORAL
     Route: 048
  3. PROCARDIA XL [Suspect]
     Indication: HYPERTENSION
     Dosage: 30 MG (30 MG, 1 IN 1 D), ORAL
     Route: 048
  4. K-DUR 10 [Concomitant]
  5. APRESOLINE [Concomitant]
  6. COUMADIN [Concomitant]
  7. TENORMIN [Concomitant]
  8. VASOTEC [Concomitant]

REACTIONS (6)
  - ARTERIAL REPAIR [None]
  - CEREBRAL ARTERY OCCLUSION [None]
  - CEREBROVASCULAR ACCIDENT [None]
  - CORONARY ARTERIAL STENT INSERTION [None]
  - TRANSIENT ISCHAEMIC ATTACK [None]
  - VASCULAR GRAFT COMPLICATION [None]
